FAERS Safety Report 14815641 (Version 6)
Quarter: 2019Q2

REPORT INFORMATION
  Report Type: Spontaneous
  Country: US (occurrence: US)
  Receive Date: 20180426
  Receipt Date: 20190528
  Transmission Date: 20190711
  Serious: Yes (Hospitalization, Other)
  Sender: FDA-Public Use
  Company Number: US-GILEAD-2018-0334741

PATIENT
  Age: 57 Year
  Sex: Female
  Weight: 69.3 kg

DRUGS (25)
  1. TOPROL XL [Concomitant]
     Active Substance: METOPROLOL SUCCINATE
  2. DITROPAN [Concomitant]
     Active Substance: OXYBUTYNIN CHLORIDE
  3. ENDOCET [Concomitant]
     Active Substance: ACETAMINOPHEN\OXYCODONE HYDROCHLORIDE
  4. MINIPRESS [Concomitant]
     Active Substance: PRAZOSIN HYDROCHLORIDE
  5. CYMBALTA [Concomitant]
     Active Substance: DULOXETINE HYDROCHLORIDE
  6. DUONEB [Concomitant]
     Active Substance: ALBUTEROL SULFATE\IPRATROPIUM BROMIDE
  7. PROTONIX [Concomitant]
     Active Substance: PANTOPRAZOLE SODIUM
  8. FLONASE [MOMETASONE FUROATE] [Concomitant]
     Active Substance: MOMETASONE FUROATE
  9. REMERON [Concomitant]
     Active Substance: MIRTAZAPINE
  10. NALOXONE [Concomitant]
     Active Substance: NALOXONE
  11. LIPITOR [Concomitant]
     Active Substance: ATORVASTATIN CALCIUM
  12. PROVENTIL HFA [SALBUTAMOL] [Concomitant]
  13. BIKTARVY [Concomitant]
     Active Substance: BICTEGRAVIR SODIUM\EMTRICITABINE\TENOFOVIR ALAFENAMIDE FUMARATE
     Dosage: UNK
     Dates: start: 20180425
  14. ENSURE [NUTRIENTS NOS] [Concomitant]
  15. DESCOVY [Suspect]
     Active Substance: EMTRICITABINE\TENOFOVIR ALAFENAMIDE FUMARATE
     Indication: HIV INFECTION
     Dosage: 1 DOSAGE FORM
     Route: 048
     Dates: start: 20160922, end: 20180413
  16. TIVICAY [Suspect]
     Active Substance: DOLUTEGRAVIR SODIUM
     Indication: HIV INFECTION
     Dosage: 50 MG, UNK
     Route: 048
     Dates: start: 20160922, end: 20180413
  17. ADVAIR HFA [Concomitant]
     Active Substance: FLUTICASONE PROPIONATE\SALMETEROL XINAFOATE
  18. ZOFRAN [Concomitant]
     Active Substance: ONDANSETRON HYDROCHLORIDE
  19. WELLBUTRIN [Concomitant]
     Active Substance: BUPROPION HYDROCHLORIDE
  20. VOLTAREN [DICLOFENAC] [Concomitant]
     Active Substance: DICLOFENAC SODIUM
  21. SEROQUEL [Concomitant]
     Active Substance: QUETIAPINE FUMARATE
  22. CHOLECALCIFEROL [Concomitant]
     Active Substance: CHOLECALCIFEROL
  23. ASPIRIN [ACETYLSALICYLIC ACID] [Concomitant]
     Active Substance: ASPIRIN
  24. NEURONTIN [Concomitant]
     Active Substance: GABAPENTIN
  25. COZAAR [Concomitant]
     Active Substance: LOSARTAN POTASSIUM

REACTIONS (10)
  - Nausea [Not Recovered/Not Resolved]
  - Chest pain [Not Recovered/Not Resolved]
  - Dizziness [Not Recovered/Not Resolved]
  - Pancreatitis [Recovered/Resolved]
  - Head injury [Unknown]
  - Loss of consciousness [Recovered/Resolved]
  - Lipase increased [Not Recovered/Not Resolved]
  - Abdominal pain [Not Recovered/Not Resolved]
  - Amylase increased [Unknown]
  - Fall [Unknown]

NARRATIVE: CASE EVENT DATE: 20180412
